FAERS Safety Report 15464117 (Version 1)
Quarter: 2018Q4

REPORT INFORMATION
  Report Type: Spontaneous
  Country: US (occurrence: US)
  Receive Date: 20181004
  Receipt Date: 20181004
  Transmission Date: 20190204
  Serious: Yes (Hospitalization, Other)
  Sender: FDA-Public Use
  Company Number: US-009507513-1810USA001082

PATIENT
  Age: 28 Year
  Sex: Female

DRUGS (3)
  1. ELIQUIS [Suspect]
     Active Substance: APIXABAN
     Dosage: UNK
     Route: 048
     Dates: start: 2016
  2. NUVARING [Suspect]
     Active Substance: ETHINYL ESTRADIOL\ETONOGESTREL
     Indication: CONTRACEPTION
     Route: 067
  3. ASPIRIN. [Suspect]
     Active Substance: ASPIRIN
     Dosage: LOW DOSE
     Route: 048

REACTIONS (10)
  - Haemorrhagic diathesis [Not Recovered/Not Resolved]
  - Pulmonary embolism [Not Recovered/Not Resolved]
  - Feeling abnormal [Unknown]
  - Blood iron decreased [Unknown]
  - Increased tendency to bruise [Not Recovered/Not Resolved]
  - Adverse event [Unknown]
  - Syncope [Recovered/Resolved]
  - Adverse event [Unknown]
  - Injury [Unknown]
  - Vital functions abnormal [Unknown]

NARRATIVE: CASE EVENT DATE: 2016
